FAERS Safety Report 4699618-0 (Version None)
Quarter: 2005Q2

REPORT INFORMATION
  Report Type: 
  Country: None (occurrence: None)
  Receive Date: 20050623
  Receipt Date: 20050610
  Transmission Date: 20051028
  Serious: Yes (Hospitalization)
  Sender: FDA-Public Use
  Company Number: 2005087157

PATIENT
  Age: 79 Year
  Sex: Female

DRUGS (5)
  1. RELPAX [Suspect]
     Indication: MIGRAINE
     Dosage: ORAL
     Route: 048
     Dates: start: 20050503, end: 20050515
  2. COKENZEN (CANDESARTAN CILEXETIL, HYDROCHLOROTHIAZIDE) [Concomitant]
  3. MEMANTINE HYDROCHLORIDE (MEMANTINE HYDROCHLORIDE) [Concomitant]
  4. LORAZEPAM [Concomitant]
  5. ATHYMIL (MIANSERIN HYDROCHLORIDE) [Concomitant]

REACTIONS (1)
  - MYOCLONUS [None]
